FAERS Safety Report 22113818 (Version 3)
Quarter: 2023Q2

REPORT INFORMATION
  Report Type: Spontaneous
  Country: UA (occurrence: UA)
  Receive Date: 20230320
  Receipt Date: 20230405
  Transmission Date: 20230722
  Serious: Yes (Hospitalization)
  Sender: FDA-Public Use
  Company Number: UA-002147023-NVSC2023UA061204

PATIENT
  Age: 44 Year
  Sex: Female

DRUGS (11)
  1. CLOFAZIMINE [Suspect]
     Active Substance: CLOFAZIMINE
     Indication: Pulmonary tuberculosis
     Dosage: UNK
     Route: 065
     Dates: start: 20200421, end: 20220113
  2. AMOXICILLIN\CLAVULANIC ACID [Suspect]
     Active Substance: AMOXICILLIN\CLAVULANIC ACID
     Indication: Pulmonary tuberculosis
     Dosage: UNK
     Route: 065
     Dates: start: 20210204
  3. BEDAQUILINE [Suspect]
     Active Substance: BEDAQUILINE
     Indication: Pulmonary tuberculosis
     Dosage: UNK
     Route: 065
     Dates: start: 20200421
  4. LINEZOLID [Suspect]
     Active Substance: LINEZOLID
     Indication: Pulmonary tuberculosis
     Dosage: UNK
     Route: 065
     Dates: start: 20200421, end: 20200520
  5. LEVOFLOXACIN [Suspect]
     Active Substance: LEVOFLOXACIN
     Indication: Pulmonary tuberculosis
     Dosage: UNK
     Route: 065
     Dates: start: 20200421
  6. CAPREOMYCIN [Suspect]
     Active Substance: CAPREOMYCIN
     Indication: Pulmonary tuberculosis
     Dosage: UNK
     Route: 065
     Dates: start: 20200421
  7. DELAMANID [Suspect]
     Active Substance: DELAMANID
     Indication: Pulmonary tuberculosis
     Dosage: UNK
     Route: 065
     Dates: start: 20201008
  8. LAMPRENE [Suspect]
     Active Substance: CLOFAZIMINE
     Indication: Product used for unknown indication
     Dosage: 100 MG, QD
     Route: 065
     Dates: start: 20200421, end: 202005
  9. LAMPRENE [Suspect]
     Active Substance: CLOFAZIMINE
     Dosage: 100 MG, QD
     Route: 065
     Dates: start: 202005, end: 202105
  10. LAMPRENE [Suspect]
     Active Substance: CLOFAZIMINE
     Dosage: 100 MG, QD
     Route: 065
     Dates: start: 202105, end: 202111
  11. LAMPRENE [Suspect]
     Active Substance: CLOFAZIMINE
     Dosage: 100 MG, QD
     Route: 065
     Dates: start: 202111, end: 202205

REACTIONS (3)
  - Pulmonary tuberculosis [Not Recovered/Not Resolved]
  - Treatment failure [Unknown]
  - Product prescribing issue [Unknown]
